FAERS Safety Report 6902316-3 (Version None)
Quarter: 2010Q3

REPORT INFORMATION
  Report Type: 
  Country: None (occurrence: None)
  Receive Date: 20100803
  Receipt Date: 20080515
  Transmission Date: 20110219
  Serious: No
  Sender: FDA-Public Use
  Company Number: US-PFIZER INC-2008027821

PATIENT
  Sex: Female
  Weight: 65.9 kg

DRUGS (11)
  1. LYRICA [Suspect]
     Indication: FIBROMYALGIA
     Dates: start: 20080328
  2. LYRICA [Suspect]
     Indication: BACK PAIN
  3. HYOSCYAMINE [Concomitant]
  4. KLONOPIN [Concomitant]
  5. CLONIDINE [Concomitant]
  6. ATENOLOL [Concomitant]
  7. ZOCOR [Concomitant]
  8. ESTRADIOL [Concomitant]
  9. HYDROCODONE BITARTRATE [Concomitant]
  10. HYDROCHLOROTHIAZIDE [Concomitant]
  11. ALTACE [Concomitant]

REACTIONS (2)
  - DIZZINESS [None]
  - VISION BLURRED [None]
